FAERS Safety Report 8809223 (Version 1)
Quarter: 2012Q4

REPORT INFORMATION
  Report Type: 
  Country: IT (occurrence: IT)
  Receive Date: 20120926
  Receipt Date: 20120926
  Transmission Date: 20130627
  Serious: Yes (Hospitalization)
  Sender: FDA-Public Use
  Company Number: PHHY2012IT081702

PATIENT
  Age: 96 Year
  Sex: Female

DRUGS (10)
  1. LEVOFLOXACIN [Suspect]
     Indication: BRONCHITIS
     Dosage: 500 mg, QD
     Dates: start: 20120817
  2. MEPRAL [Concomitant]
     Route: 048
  3. VENTOLINE [Concomitant]
  4. ZYLORIC ^FRESENIUS^ [Concomitant]
     Route: 048
  5. MICARDIS [Concomitant]
     Route: 048
  6. DIUREMID [Concomitant]
     Route: 048
  7. ISOPTIN [Concomitant]
     Route: 048
  8. DONA [Concomitant]
     Route: 048
  9. VERTISERC [Concomitant]
     Route: 048
  10. SPIRIVA RESPIMAT [Concomitant]

REACTIONS (2)
  - Renal failure acute [Recovering/Resolving]
  - Aortic arteriosclerosis [Recovering/Resolving]
